FAERS Safety Report 8591610-9 (Version None)
Quarter: 2012Q3

REPORT INFORMATION
  Report Type: 
  Country: None (occurrence: None)
  Receive Date: 20120814
  Receipt Date: 20120808
  Transmission Date: 20120928
  Serious: No
  Sender: FDA-Public Use
  Company Number: US-PFIZER INC-2012194280

PATIENT
  Age: 56 Year
  Sex: Male
  Weight: 104.31 kg

DRUGS (6)
  1. LISINOPRIL [Concomitant]
     Dosage: UNK, DAILY
  2. LYRICA [Suspect]
     Dosage: 75MG TWO CAPSULE DAILY AT NIGHT
     Route: 048
     Dates: start: 20120101
  3. LYRICA [Suspect]
     Indication: DIABETIC NEUROPATHY
     Dosage: 75 MG, DAILY
     Route: 048
     Dates: start: 20110101
  4. METFORMIN [Concomitant]
     Indication: DIABETES MELLITUS
     Dosage: 1000 MG, DAILY
  5. NOVOLOG [Concomitant]
     Indication: DIABETES MELLITUS
     Dosage: UNK, DAILY
  6. INSULIN DETEMIR [Concomitant]
     Indication: DIABETES MELLITUS
     Dosage: UNK, DAILY

REACTIONS (3)
  - SOMNOLENCE [None]
  - HEADACHE [None]
  - SKIN DISORDER [None]
